FAERS Safety Report 7384208-1 (Version None)
Quarter: 2011Q1

REPORT INFORMATION
  Report Type: 
  Country: None (occurrence: None)
  Receive Date: 20110330
  Receipt Date: 20110322
  Transmission Date: 20110831
  Serious: Yes (Death, Other)
  Sender: FDA-Public Use
  Company Number: SE-GENZYME-THYM-1002373

PATIENT

DRUGS (2)
  1. THYMOGLOBULIN [Suspect]
     Indication: BONE MARROW CONDITIONING REGIMEN
  2. CYCLOPHOSPHAMIDE [Concomitant]
     Indication: BONE MARROW CONDITIONING REGIMEN

REACTIONS (6)
  - EPSTEIN-BARR VIRUS TEST POSITIVE [None]
  - BK VIRUS INFECTION [None]
  - GRAFT VERSUS HOST DISEASE [None]
  - ADENOVIRUS TEST POSITIVE [None]
  - CYTOMEGALOVIRUS TEST POSITIVE [None]
  - PARVOVIRUS B19 TEST POSITIVE [None]
